FAERS Safety Report 15219980 (Version 3)
Quarter: 2023Q1

REPORT INFORMATION
  Report Type: Other
  Country: US (occurrence: None)
  Receive Date: 20180731
  Receipt Date: 20230313
  Transmission Date: 20230417
  Serious: Yes (Other)
  Sender: FDA-Public Use
  Company Number: US-ROCHE-2160217

PATIENT
  Age: 53 Year
  Sex: Male
  Weight: 87.45 kg

DRUGS (13)
  1. CELLCEPT [Suspect]
     Active Substance: MYCOPHENOLATE MOFETIL
     Indication: Renal transplant
     Dosage: TAKE 3 CAPSULES
     Route: 048
  2. CELLCEPT [Suspect]
     Active Substance: MYCOPHENOLATE MOFETIL
     Dosage: 3 CAPSULES
     Route: 048
     Dates: start: 20181226
  3. AMOXICILLIN [Concomitant]
     Active Substance: AMOXICILLIN
     Route: 048
     Dates: end: 20190109
  4. ATORVASTATIN [Concomitant]
     Active Substance: ATORVASTATIN
     Route: 048
     Dates: end: 20190109
  5. CLONIDINE [Concomitant]
     Active Substance: CLONIDINE
     Route: 048
     Dates: start: 20100409
  6. DILTIAZEM HYDROCHLORIDE [Concomitant]
     Active Substance: DILTIAZEM HYDROCHLORIDE
     Route: 048
  7. NEXIUM [Concomitant]
     Active Substance: ESOMEPRAZOLE MAGNESIUM
     Route: 048
  8. NORCO [Concomitant]
     Active Substance: ACETAMINOPHEN\HYDROCODONE BITARTRATE
     Dosage: 1 TABLET
     Route: 048
     Dates: start: 20140516
  9. NOVOLOG [Concomitant]
     Active Substance: INSULIN ASPART
     Dosage: 10
     Route: 058
     Dates: start: 20130321, end: 20190109
  10. PROGRAF [Concomitant]
     Active Substance: TACROLIMUS
     Route: 048
  11. PROGRAF [Concomitant]
     Active Substance: TACROLIMUS
     Route: 048
  12. HUMULIN NOS [Concomitant]
     Active Substance: INSULIN HUMAN
     Dosage: 20 UI AM AND 20 UI PM
     Route: 058
  13. TYLENOL [Concomitant]
     Active Substance: ACETAMINOPHEN
     Route: 048

REACTIONS (14)
  - Blindness [Unknown]
  - Vision blurred [Unknown]
  - Diarrhoea [Unknown]
  - Dyspepsia [Unknown]
  - Vomiting [Unknown]
  - Back pain [Unknown]
  - Balance disorder [Unknown]
  - Mood altered [Unknown]
  - Insomnia [Unknown]
  - Contusion [Unknown]
  - Dizziness [Unknown]
  - Hypertension [Unknown]
  - Balance disorder [Unknown]
  - Hypertension [Unknown]
